FAERS Safety Report 6894978-4 (Version None)
Quarter: 2010Q3

REPORT INFORMATION
  Report Type: 
  Country: None (occurrence: None)
  Receive Date: 20100730
  Receipt Date: 20100730
  Transmission Date: 20110219
  Serious: Yes (Life-Threatening, Other)
  Sender: FDA-Public Use
  Company Number: None

PATIENT
  Age: 70 Year
  Sex: Female
  Weight: 59.8748 kg

DRUGS (1)
  1. RECLAST [Suspect]
     Indication: OSTEOPOROSIS
     Dosage: 1 X A YR. I.V.
     Route: 042
     Dates: start: 20100608

REACTIONS (5)
  - NAUSEA [None]
  - PRURITUS [None]
  - PSORIASIS [None]
  - RASH [None]
  - URTICARIA [None]
